FAERS Safety Report 5502673-9 (Version None)
Quarter: 2007Q4

REPORT INFORMATION
  Report Type: 
  Country: None (occurrence: None)
  Receive Date: 20071031
  Receipt Date: 20071022
  Transmission Date: 20080405
  Serious: Yes (Hospitalization)
  Sender: FDA-Public Use
  Company Number: US-ELI_LILLY_AND_COMPANY-US200710005293

PATIENT
  Sex: Female

DRUGS (14)
  1. FORTEO [Suspect]
     Indication: OSTEOPOROSIS
     Dosage: UNK, UNK
     Dates: start: 20070801
  2. FORTEO [Suspect]
  3. CYCLOVIR [Concomitant]
  4. LABETALOL HCL [Concomitant]
  5. PRILOSEC [Concomitant]
  6. LASIX [Concomitant]
  7. POTASSIUM CHLORIDE [Concomitant]
  8. SULFASALAZINE [Concomitant]
  9. DECADRON [Concomitant]
  10. KEPPRA [Concomitant]
  11. MULTI-VITAMIN [Concomitant]
  12. TEMODAR [Concomitant]
     Indication: CHEMOTHERAPY
  13. ZOLOFT [Concomitant]
  14. SYNTHROID [Concomitant]

REACTIONS (3)
  - BALANCE DISORDER [None]
  - FALL [None]
  - FIBULA FRACTURE [None]
